FAERS Safety Report 8966186 (Version 1)
Quarter: 2012Q4

REPORT INFORMATION
  Report Type: 
  Country: FR (occurrence: FR)
  Receive Date: 20121214
  Receipt Date: 20121214
  Transmission Date: 20130627
  Serious: Yes (Other)
  Sender: FDA-Public Use
  Company Number: FR-GENZYME-MOZO-1000793

PATIENT
  Sex: Female

DRUGS (2)
  1. MOZOBIL [Suspect]
     Indication: HAEMATOPOIETIC STEM CELL MOBILISATION
     Dosage: UNK
     Route: 042
     Dates: start: 201104
  2. MOZOBIL [Suspect]
     Indication: MANTLE CELL LYMPHOMA

REACTIONS (1)
  - Anaphylactic shock [Recovered/Resolved]
